FAERS Safety Report 6690395-0 (Version None)
Quarter: 2010Q2

REPORT INFORMATION
  Report Type: 
  Country: None (occurrence: None)
  Receive Date: 20100421
  Receipt Date: 20100408
  Transmission Date: 20101027
  Serious: Yes (Hospitalization)
  Sender: FDA-Public Use
  Company Number: KR-CELGENEUS-090-CCAZA-10040587

PATIENT
  Sex: Male

DRUGS (2)
  1. VIDAZA [Suspect]
     Route: 058
     Dates: start: 20090703, end: 20090709
  2. VIDAZA [Suspect]
     Route: 058
     Dates: start: 20090820, end: 20090826

REACTIONS (2)
  - ENTEROCOLITIS HAEMORRHAGIC [None]
  - MUSCLE HAEMORRHAGE [None]
